FAERS Safety Report 9788358 (Version 2)
Quarter: 2013Q4

REPORT INFORMATION
  Report Type: Report from Study
  Country: US (occurrence: US)
  Receive Date: 20131230
  Receipt Date: 20131230
  Transmission Date: 20140711
  Serious: Yes (Other)
  Sender: FDA-Public Use
  Company Number: PHEH2013US022506

PATIENT
  Sex: Male

DRUGS (1)
  1. TOBI [Suspect]
     Dosage: 300 MG, BID
     Route: 055

REACTIONS (4)
  - Pulmonary fibrosis [Unknown]
  - Temperature intolerance [Unknown]
  - Cough [Unknown]
  - Aphonia [Unknown]
